FAERS Safety Report 25754818 (Version 3)
Quarter: 2025Q3

REPORT INFORMATION
  Report Type: Spontaneous
  Country: US (occurrence: US)
  Receive Date: 20250903
  Receipt Date: 20250926
  Transmission Date: 20251021
  Serious: No
  Sender: APOTEX
  Company Number: US-APOTEX-2025AP011967

PATIENT

DRUGS (1)
  1. DESMOPRESSIN ACETATE [Suspect]
     Active Substance: DESMOPRESSIN ACETATE
     Indication: Product used for unknown indication
     Dosage: 2 DOSAGE FORM, BID (1 SPRAY NASALLY IN ALTERNATE NOSTRILS)
     Route: 045

REACTIONS (3)
  - Incorrect dose administered by device [Unknown]
  - Product delivery mechanism issue [Unknown]
  - Device issue [Unknown]

NARRATIVE: CASE EVENT DATE: 20250501
